FAERS Safety Report 23249049 (Version 8)
Quarter: 2024Q1

REPORT INFORMATION
  Report Type: Report from Study
  Country: US (occurrence: US)
  Receive Date: 20231201
  Receipt Date: 20240306
  Transmission Date: 20240410
  Serious: Yes (Other)
  Sender: FDA-Public Use
  Company Number: US-ABBVIE-5519731

PATIENT
  Sex: Female
  Weight: 62 kg

DRUGS (22)
  1. RINVOQ [Suspect]
     Active Substance: UPADACITINIB
     Indication: Rheumatoid arthritis
     Dosage: FORM STRENGTH: 15 MILIGRAM
     Route: 048
     Dates: start: 20231018, end: 20231106
  2. RINVOQ [Suspect]
     Active Substance: UPADACITINIB
     Indication: Rheumatoid arthritis
     Dosage: FORM STRENGTH: 15 MILIGRAM?FIRST ADMIN DATE: NOV 2023
     Route: 048
     Dates: end: 20231112
  3. WELCHOL [Concomitant]
     Active Substance: COLESEVELAM HYDROCHLORIDE
     Indication: Blood cholesterol
  4. ACETAMINOPHEN\HYDROCODONE [Concomitant]
     Active Substance: ACETAMINOPHEN\HYDROCODONE
     Indication: Product used for unknown indication
  5. CLONAZEPAM [Concomitant]
     Active Substance: CLONAZEPAM
     Indication: Anxiety
     Dosage: FREQUENCY TEXT: PRN
     Route: 048
  6. FOLIC ACID [Concomitant]
     Active Substance: FOLIC ACID
     Indication: Rheumatoid arthritis
     Route: 048
  7. PANTOPRAZOLE [Concomitant]
     Active Substance: PANTOPRAZOLE
     Indication: Gastrooesophageal reflux disease
  8. METHOTREXATE [Concomitant]
     Active Substance: METHOTREXATE
     Indication: Rheumatoid arthritis
     Dosage: FREQUENCY TEXT: 4 TABLETS WEEKLY
     Route: 048
  9. FLUOXETINE [Concomitant]
     Active Substance: FLUOXETINE HYDROCHLORIDE
     Indication: Anxiety
  10. VITAMIN B12 [Concomitant]
     Active Substance: CYANOCOBALAMIN
     Indication: Vitamin B12 deficiency
     Route: 058
  11. CHOLESTYRAMINE [Concomitant]
     Active Substance: CHOLESTYRAMINE
     Indication: Irritable bowel syndrome
     Dosage: CHOLESTYRAMINE 378 GM POWDER,?STRENGTH 4 GRAMS
  12. PROTONIX [Concomitant]
     Active Substance: PANTOPRAZOLE SODIUM
     Indication: Gastrointestinal disorder
     Route: 048
  13. TRAMADOL [Concomitant]
     Active Substance: TRAMADOL\TRAMADOL HYDROCHLORIDE
     Indication: Product used for unknown indication
  14. IBUPROFEN [Concomitant]
     Active Substance: IBUPROFEN
     Indication: Product used for unknown indication
  15. BUSPAR [Concomitant]
     Active Substance: BUSPIRONE HYDROCHLORIDE
     Indication: Anxiety
     Route: 048
  16. PROZAC [Concomitant]
     Active Substance: FLUOXETINE HYDROCHLORIDE
     Indication: Anxiety
     Dosage: FORM STRENGTH: 20 IU
     Route: 048
  17. DICLOFENAC SODIUM [Concomitant]
     Active Substance: DICLOFENAC\DICLOFENAC SODIUM
     Indication: Product used for unknown indication
     Dosage: FORM STRENGTH: 1 PERCENT
     Route: 065
  18. CYCLOBENZAPRINE [Concomitant]
     Active Substance: CYCLOBENZAPRINE
     Indication: Product used for unknown indication
  19. MENAQUINONE 6 [Concomitant]
     Active Substance: MENAQUINONE 6
     Indication: Product used for unknown indication
  20. VITAMIN D3 [Concomitant]
     Active Substance: CHOLECALCIFEROL
     Indication: Product used for unknown indication
  21. GABAPENTIN [Concomitant]
     Active Substance: GABAPENTIN
     Indication: Deep vein thrombosis
     Dosage: TIME INTERVAL: 0.33333333 DAYS: FORM STRENGTH: 100 MG
     Route: 048
     Dates: start: 20240110
  22. INFLUENZA VIRUS VACCINE [Concomitant]
     Active Substance: INFLUENZA VIRUS VACCINE
     Indication: Influenza immunisation
     Dates: start: 20221004, end: 20221004

REACTIONS (24)
  - Deep vein thrombosis [Recovered/Resolved]
  - Oophorectomy [Recovered/Resolved]
  - Rhinorrhoea [Recovered/Resolved]
  - Impaired work ability [Recovered/Resolved]
  - Nasal congestion [Recovered/Resolved]
  - Drug hypersensitivity [Recovered/Resolved]
  - Pain [Recovered/Resolved]
  - Pleuritic pain [Recovered/Resolved]
  - Skin warm [Recovered/Resolved]
  - Thrombosis [Recovered/Resolved]
  - Salpingectomy [Recovered/Resolved]
  - Phlebitis [Unknown]
  - Nasal discharge discolouration [Recovered/Resolved]
  - Intrauterine contraception [Recovered/Resolved]
  - Tachycardia [Recovered/Resolved]
  - Abdominal pain [Unknown]
  - Pulmonary mass [Unknown]
  - Injection site erythema [Recovered/Resolved]
  - Injection site swelling [Recovered/Resolved]
  - Injection site warmth [Recovered/Resolved]
  - Skin discolouration [Recovered/Resolved]
  - Feeling hot [Unknown]
  - Loss of personal independence in daily activities [Recovered/Resolved]
  - Arthralgia [Unknown]

NARRATIVE: CASE EVENT DATE: 20230101
